FAERS Safety Report 7636696-0 (Version None)
Quarter: 2011Q3

REPORT INFORMATION
  Report Type: 
  Country: None (occurrence: None)
  Receive Date: 20110726
  Receipt Date: 20110520
  Transmission Date: 20111222
  Serious: No
  Sender: FDA-Public Use
  Company Number: US-BAYER-2011-044684

PATIENT
  Age: 80 Year
  Sex: Female
  Weight: 67 kg

DRUGS (7)
  1. ALEVE (CAPLET) [Suspect]
     Indication: ANALGESIC THERAPY
     Dosage: 1 DF, UNK
     Route: 048
     Dates: start: 20110101
  2. LUTEIN [Concomitant]
  3. TYLENOL 1 [Concomitant]
  4. TRIAMTERENE [Concomitant]
  5. VITAMIN D [Concomitant]
     Dosage: 400 U, UNK
  6. PRESERVISION EYE VITAMIN AND MINERAL SUPPL. [Concomitant]
     Dosage: 1 DF, QD
     Route: 048
  7. CALCIUM ACETATE [Concomitant]
     Dosage: 600 MG, UNK

REACTIONS (3)
  - ABDOMINAL DISCOMFORT [None]
  - ABDOMINAL DISTENSION [None]
  - ERUCTATION [None]
